FAERS Safety Report 12282744 (Version 3)
Quarter: 2016Q2

REPORT INFORMATION
  Report Type: Report from Study
  Country: US (occurrence: US)
  Receive Date: 20160419
  Receipt Date: 20160506
  Transmission Date: 20160815
  Serious: Yes (Hospitalization, Other)
  Sender: FDA-Public Use
  Company Number: US-JNJFOC-20160417283

PATIENT
  Age: 84 Year
  Sex: Male

DRUGS (2)
  1. KAPSOVIT [Concomitant]
     Indication: MACULAR DEGENERATION
  2. IMBRUVICA [Suspect]
     Active Substance: IBRUTINIB
     Indication: CHRONIC LYMPHOCYTIC LEUKAEMIA
     Route: 048
     Dates: start: 20151109, end: 20160319

REACTIONS (5)
  - Hemiparesis [Recovered/Resolved]
  - Nocardiosis [Unknown]
  - Brain abscess [Not Recovered/Not Resolved]
  - Diarrhoea [Recovered/Resolved]
  - Pneumonia pneumococcal [Recovered/Resolved]

NARRATIVE: CASE EVENT DATE: 2016
